FAERS Safety Report 21672661 (Version 1)
Quarter: 2022Q4

REPORT INFORMATION
  Report Type: Spontaneous
  Country: US (occurrence: None)
  Receive Date: 20221201
  Receipt Date: 20221201
  Transmission Date: 20230113
  Serious: No
  Sender: FDA-Public Use
  Company Number: None

PATIENT
  Age: 60 Year
  Sex: Male

DRUGS (1)
  1. CAPECITABINE [Suspect]
     Active Substance: CAPECITABINE
     Dosage: 2000MG BID ORAL?
     Route: 048
     Dates: start: 202208

REACTIONS (3)
  - Haemorrhage [None]
  - Therapy interrupted [None]
  - Ear injury [None]

NARRATIVE: CASE EVENT DATE: 20221129
